FAERS Safety Report 19887001 (Version 1)
Quarter: 2021Q3

REPORT INFORMATION
  Report Type: Report from Study
  Country: DE (occurrence: DE)
  Receive Date: 20210927
  Receipt Date: 20210927
  Transmission Date: 20211014
  Serious: Yes (Hospitalization)
  Sender: FDA-Public Use
  Company Number: DE-CELGENEUS-DEU-20210900910

PATIENT
  Age: 53 Year
  Sex: Male
  Weight: 94.08 kg

DRUGS (6)
  1. OZANIMOD. [Suspect]
     Active Substance: OZANIMOD
     Dosage: .23 MILLIGRAM
     Route: 048
     Dates: start: 20201212, end: 20201214
  2. OZANIMOD. [Suspect]
     Active Substance: OZANIMOD
     Dosage: .92 MILLIGRAM
     Route: 048
     Dates: start: 20201215, end: 20210307
  3. PROPOFOL. [Concomitant]
     Active Substance: PROPOFOL
     Indication: CROHN^S DISEASE
     Route: 041
  4. PROPOFOL. [Concomitant]
     Active Substance: PROPOFOL
     Route: 041
  5. OZANIMOD. [Suspect]
     Active Substance: OZANIMOD
     Indication: CROHN^S DISEASE
     Dosage: .23 MILLIGRAM
     Route: 048
     Dates: start: 20201208, end: 20201211
  6. PREDNISONE. [Concomitant]
     Active Substance: PREDNISONE
     Indication: CROHN^S DISEASE
     Dosage: 10 MILLIGRAM
     Route: 048

REACTIONS (1)
  - Colonic abscess [Recovered/Resolved]

NARRATIVE: CASE EVENT DATE: 20210901
